FAERS Safety Report 22001857 (Version 1)
Quarter: 2023Q1

REPORT INFORMATION
  Report Type: Spontaneous
  Country: US (occurrence: US)
  Receive Date: 20230216
  Receipt Date: 20230216
  Transmission Date: 20230417
  Serious: No
  Sender: FDA-Public Use
  Company Number: US-JNJFOC-20230225724

PATIENT

DRUGS (1)
  1. ZYRTEC [Suspect]
     Active Substance: CETIRIZINE HYDROCHLORIDE
     Indication: Product used for unknown indication
     Dosage: PATIENT TOOK IT DAYTIME AND ANOTHER AT NIGHT.
     Route: 065

REACTIONS (4)
  - Gastritis [Unknown]
  - Nausea [Unknown]
  - Overdose [Unknown]
  - Inappropriate schedule of product administration [Unknown]
